FAERS Safety Report 9739493 (Version 1)
Quarter: 2013Q4

REPORT INFORMATION
  Report Type: Spontaneous
  Country: US (occurrence: US)
  Receive Date: 20131209
  Receipt Date: 20131209
  Transmission Date: 20140711
  Serious: No
  Sender: FDA-Public Use
  Company Number: US-ABBVIE-12P-163-1018960-00

PATIENT
  Age: 66 Year
  Sex: Female
  Weight: 62.65 kg

DRUGS (4)
  1. OTHER UNKNOWN MEDICATIONS [Concomitant]
     Indication: PRODUCT USED FOR UNKNOWN INDICATION
  2. ESTRADIOL [Concomitant]
     Indication: HORMONE REPLACEMENT THERAPY
     Route: 048
  3. PROGESTERONE [Suspect]
     Indication: HORMONE REPLACEMENT THERAPY
     Route: 048
     Dates: start: 2002, end: 20121203
  4. PROGESTERONE [Suspect]
     Route: 048
     Dates: start: 20121204

REACTIONS (3)
  - Anxiety [Recovered/Resolved]
  - Insomnia [Recovered/Resolved]
  - Sensation of heaviness [Recovered/Resolved]
